FAERS Safety Report 15004405 (Version 5)
Quarter: 2019Q3

REPORT INFORMATION
  Report Type: Spontaneous
  Country: US (occurrence: US)
  Receive Date: 20180613
  Receipt Date: 20190708
  Transmission Date: 20191004
  Serious: Yes (Hospitalization)
  Sender: FDA-Public Use
  Company Number: US-TEVA-2018-US-903418

PATIENT
  Age: 41 Year
  Sex: Male
  Weight: 62.65 kg

DRUGS (3)
  1. EPOPROSTENOL SODIUM. [Suspect]
     Active Substance: EPOPROSTENOL SODIUM
     Dosage: 82NG/KG/MIN
     Route: 042
  2. EPOPROSTENOL SODIUM. [Suspect]
     Active Substance: EPOPROSTENOL SODIUM
     Indication: MICROPENIS
     Dosage: 62NG/KG/MIN
     Route: 042
     Dates: start: 20161004
  3. EPOPROSTENOL SODIUM. [Suspect]
     Active Substance: EPOPROSTENOL SODIUM
     Dosage: 87 NG PER KG PER MIN
     Route: 042

REACTIONS (2)
  - Pyrexia [Unknown]
  - Liver transplant [Unknown]

NARRATIVE: CASE EVENT DATE: 20181204
